FAERS Safety Report 9355370 (Version 1)
Quarter: 2013Q2

REPORT INFORMATION
  Report Type: Report from Study
  Country: CA (occurrence: CA)
  Receive Date: 20130619
  Receipt Date: 20130619
  Transmission Date: 20140414
  Serious: Yes (Other)
  Sender: FDA-Public Use
  Company Number: CA-JNJFOC-20130610272

PATIENT
  Age: 18 Year
  Sex: Male

DRUGS (3)
  1. REMICADE [Suspect]
     Indication: COLITIS ULCERATIVE
     Dosage: LOADING DOSE, THEN EVERY 8 WEEKS
     Route: 042
     Dates: start: 20130511
  2. REMICADE [Suspect]
     Indication: COLITIS ULCERATIVE
     Route: 042
     Dates: start: 20130603, end: 201306
  3. PREDNISONE [Concomitant]
     Route: 065

REACTIONS (1)
  - Intestinal resection [Unknown]
